FAERS Safety Report 10267861 (Version 1)
Quarter: 2014Q2

REPORT INFORMATION
  Report Type: Spontaneous
  Country: US (occurrence: US)
  Receive Date: 20140630
  Receipt Date: 20140630
  Transmission Date: 20141212
  Serious: No
  Sender: FDA-Public Use
  Company Number: US-PFIZER INC-2014180390

PATIENT
  Age: 69 Year
  Sex: Female
  Weight: 118 kg

DRUGS (11)
  1. LYRICA [Suspect]
     Indication: POST HERPETIC NEURALGIA
     Dosage: 75 MG, 2X/DAY
     Route: 048
     Dates: start: 20140626
  2. AMBIEN [Suspect]
     Indication: INSOMNIA
     Dosage: UNK
     Dates: start: 20140626
  3. SPIRONOLACTONE [Concomitant]
     Dosage: 25 MG, 1X/DAY
  4. FUROSEMIDE [Concomitant]
     Dosage: UNK
  5. PRAVASTATIN [Concomitant]
     Indication: BLOOD CHOLESTEROL INCREASED
     Dosage: 40 MG, 1X/DAY
  6. POTASSIUM [Concomitant]
     Dosage: UNK
  7. ADVAIR [Concomitant]
     Indication: ASTHMA
     Dosage: UNK,2X/DAY
  8. PROVENTIL [Concomitant]
     Indication: ASTHMA
     Dosage: UNK, AS NEEDED
  9. ROPINIROLE [Concomitant]
     Indication: RESTLESS LEGS SYNDROME
     Dosage: 1 MG, 1X/DAY
  10. HYDROCODONE [Concomitant]
     Indication: PAIN
     Dosage: UNK
  11. MECLIZINE [Concomitant]
     Indication: VERTIGO
     Dosage: 12.5 MG, AS NEEDED

REACTIONS (3)
  - Drug effect incomplete [Unknown]
  - Somnolence [Unknown]
  - Feeling abnormal [Unknown]
